FAERS Safety Report 9187205 (Version 1)
Quarter: 2013Q1

REPORT INFORMATION
  Report Type: Spontaneous
  Country: US (occurrence: US)
  Receive Date: 20130322
  Receipt Date: 20130322
  Transmission Date: 20140127
  Serious: Yes (Hospitalization, Other)
  Sender: FDA-Public Use
  Company Number: CHPA2013US004729

PATIENT
  Age: 78 Year
  Sex: Female

DRUGS (11)
  1. MAALOX ANTACID WITH ANTI-GAS REGULAR [Suspect]
     Dosage: 3TSP, TID (AFTER MEALS)
     Route: 048
     Dates: start: 2007, end: 201208
  2. MAALOX ANTACID WITH ANTI-GAS REGULAR [Suspect]
     Dosage: UNK, EVERY TWO WEEKS
     Dates: start: 201208
  3. MAALOX ANTACID WITH ANTI-GAS REGULAR [Suspect]
     Dosage: UNK, PRN
     Dates: end: 2007
  4. OMEPRAZOLE [Concomitant]
     Dosage: 40 MG, BID
  5. XANAX [Concomitant]
     Dosage: UNK, QD
  6. VIT-C [Concomitant]
  7. VIT. E [Concomitant]
     Dosage: UNK, QD
  8. VIT D [Concomitant]
     Dosage: UNK, QD
  9. SYNTHYROID [Concomitant]
     Indication: HYPOTHYROIDISM
  10. GLUCOSAMIN CHONDR [Concomitant]
  11. GAVISCON EXTRA STRENGTH [Concomitant]

REACTIONS (11)
  - Gastric disorder [Not Recovered/Not Resolved]
  - Hernia [Recovered/Resolved]
  - Hiatus hernia [Not Recovered/Not Resolved]
  - Therapeutic response unexpected [Unknown]
  - Influenza [Recovering/Resolving]
  - Anaesthetic complication [Recovered/Resolved]
  - Procedural complication [Unknown]
  - Chest pain [Recovered/Resolved]
  - Muscle spasms [Recovered/Resolved]
  - Dyspnoea [Recovered/Resolved]
  - Off label use [Unknown]
